FAERS Safety Report 17813443 (Version 2)
Quarter: 2020Q3

REPORT INFORMATION
  Report Type: Spontaneous
  Country: AT (occurrence: AT)
  Receive Date: 20200521
  Receipt Date: 20200709
  Transmission Date: 20201102
  Serious: Yes (Hospitalization, Other)
  Sender: FDA-Public Use
  Company Number: AT-MYLANLABS-2020M1049898

PATIENT
  Age: 27 Year
  Sex: Female

DRUGS (9)
  1. PAROXETINE. [Interacting]
     Active Substance: PAROXETINE
     Indication: FEAR
  2. PAROXETINE. [Interacting]
     Active Substance: PAROXETINE
     Indication: DEPRESSED MOOD
  3. VALPROIC ACID. [Suspect]
     Active Substance: VALPROIC ACID
     Indication: DEPRESSED MOOD
     Dosage: 1500 MILLIGRAM, QD
  4. PAROXETINE. [Suspect]
     Active Substance: PAROXETINE
     Indication: OBSESSIVE THOUGHTS
     Dosage: 60 MILLIGRAM, QD
  5. RISPERIDON [Interacting]
     Active Substance: RISPERIDONE
     Indication: FEAR
  6. SERTRALINE [Suspect]
     Active Substance: SERTRALINE HYDROCHLORIDE
     Dosage: 250 MILLIGRAM, QD
  7. SERTRALINE [Suspect]
     Active Substance: SERTRALINE HYDROCHLORIDE
     Indication: PRODUCT USED FOR UNKNOWN INDICATION
     Dosage: 100 MILLIGRAM, QD
  8. RISPERIDON [Interacting]
     Active Substance: RISPERIDONE
     Indication: OBSESSIVE THOUGHTS
     Dosage: 4 MILLIGRAM, QD
  9. RISPERIDON [Interacting]
     Active Substance: RISPERIDONE
     Indication: DEPRESSED MOOD

REACTIONS (13)
  - Generalised anxiety disorder [Unknown]
  - Amenorrhoea [Unknown]
  - Labelled drug-drug interaction medication error [Unknown]
  - Libido increased [Unknown]
  - Drug level increased [Unknown]
  - Decreased activity [Unknown]
  - Hypomania [Unknown]
  - Therapeutic product effect incomplete [Unknown]
  - Hyperprolactinaemia [Unknown]
  - Agitation [Unknown]
  - Intellectual disability [Unknown]
  - Flat affect [Unknown]
  - Treatment noncompliance [Unknown]
